FAERS Safety Report 12010772 (Version 1)
Quarter: 2016Q1

REPORT INFORMATION
  Report Type: Spontaneous
  Country: US (occurrence: US)
  Receive Date: 20160205
  Receipt Date: 20160205
  Transmission Date: 20160526
  Serious: Yes (Congenital Anomaly)
  Sender: FDA-Public Use
  Company Number: US-GALDERMA-US16000585

PATIENT
  Age: 36 Day
  Sex: Male

DRUGS (1)
  1. METRONIDAZOLE. [Suspect]
     Active Substance: METRONIDAZOLE
     Route: 064

REACTIONS (5)
  - Hypothermia neonatal [Recovered/Resolved]
  - Bradycardia neonatal [Recovered/Resolved]
  - Decreased activity [Recovered/Resolved]
  - Failure to thrive [Recovered/Resolved]
  - Foetal exposure during pregnancy [Recovered/Resolved]
